FAERS Safety Report 12889211 (Version 7)
Quarter: 2017Q2

REPORT INFORMATION
  Report Type: Spontaneous
  Country: US (occurrence: US)
  Receive Date: 20161027
  Receipt Date: 20170426
  Transmission Date: 20170830
  Serious: Yes (Congenital Anomaly, Other)
  Sender: FDA-Public Use
  Company Number: PHEH2016US027887

PATIENT
  Sex: Female

DRUGS (2)
  1. ONDANSETRON [Suspect]
     Active Substance: ONDANSETRON
     Indication: FOETAL EXPOSURE DURING PREGNANCY
     Dosage: UNK
     Route: 064
  2. ZOFRAN [Suspect]
     Active Substance: ONDANSETRON HYDROCHLORIDE
     Indication: FOETAL EXPOSURE DURING PREGNANCY
     Dosage: UNK
     Route: 064

REACTIONS (26)
  - Foetal exposure during pregnancy [Unknown]
  - Premature baby [Unknown]
  - Heart disease congenital [Unknown]
  - Congenital scoliosis [Unknown]
  - Spina bifida [Unknown]
  - Otitis media [Unknown]
  - Asthma [Unknown]
  - Eustachian tube dysfunction [Unknown]
  - Sinusitis [Unknown]
  - Constipation [Unknown]
  - Bronchiolitis [Unknown]
  - Injury [Unknown]
  - Lice infestation [Unknown]
  - Anal fissure [Unknown]
  - Jaundice neonatal [Unknown]
  - Pyrexia [Unknown]
  - Respiratory distress [Unknown]
  - Pollakiuria [Unknown]
  - Cough [Unknown]
  - Congenital torticollis [Unknown]
  - Upper respiratory tract infection [Unknown]
  - Rhinorrhoea [Unknown]
  - Vulvitis [Unknown]
  - Rhinitis allergic [Unknown]
  - Low birth weight baby [Unknown]
  - Decreased appetite [Unknown]
